FAERS Safety Report 19419397 (Version 2)
Quarter: 2022Q4

REPORT INFORMATION
  Report Type: Spontaneous
  Country: CA (occurrence: CA)
  Receive Date: 20210615
  Receipt Date: 20221007
  Transmission Date: 20230113
  Serious: Yes (Hospitalization, Other)
  Sender: FDA-Public Use
  Company Number: CA-SAMSUNG BIOEPIS-SB-2021-14188

PATIENT
  Age: 31 Year
  Sex: Female
  Weight: 78 kg

DRUGS (8)
  1. INFLIXIMAB [Suspect]
     Active Substance: INFLIXIMAB
     Indication: Crohn^s disease
     Route: 042
  2. CALCIUM [Concomitant]
     Active Substance: CALCIUM
     Indication: Product used for unknown indication
     Route: 065
  3. CORTISONE ACETATE [Concomitant]
     Active Substance: CORTISONE ACETATE
     Indication: Product used for unknown indication
     Dosage: UNKNOWN
     Route: 065
  4. IRON [Concomitant]
     Active Substance: IRON
     Indication: Product used for unknown indication
     Route: 048
  5. PREDNISONE [Concomitant]
     Active Substance: PREDNISONE
     Indication: Product used for unknown indication
     Route: 065
  6. TYLENOL [Concomitant]
     Active Substance: ACETAMINOPHEN
     Indication: Product used for unknown indication
     Route: 065
  7. TYLENOL [Concomitant]
     Active Substance: ACETAMINOPHEN
     Route: 065
  8. VITAMIN D [Concomitant]
     Active Substance: VITAMIN D NOS
     Indication: Product used for unknown indication
     Route: 048

REACTIONS (56)
  - Abdominal pain lower [Not Recovered/Not Resolved]
  - Acne [Not Recovered/Not Resolved]
  - Adnexa uteri pain [Not Recovered/Not Resolved]
  - Blood pressure systolic increased [Not Recovered/Not Resolved]
  - Burning sensation [Not Recovered/Not Resolved]
  - Chest discomfort [Not Recovered/Not Resolved]
  - Dyspnoea [Not Recovered/Not Resolved]
  - Flashback [Not Recovered/Not Resolved]
  - Fungal infection [Not Recovered/Not Resolved]
  - Groin abscess [Not Recovered/Not Resolved]
  - Hypoaesthesia [Not Recovered/Not Resolved]
  - Nightmare [Not Recovered/Not Resolved]
  - Oropharyngeal pain [Not Recovered/Not Resolved]
  - Ovarian cyst [Not Recovered/Not Resolved]
  - Ovarian disorder [Not Recovered/Not Resolved]
  - Pain [Not Recovered/Not Resolved]
  - Palpitations [Not Recovered/Not Resolved]
  - Pelvic pain [Not Recovered/Not Resolved]
  - Pollakiuria [Not Recovered/Not Resolved]
  - Rash [Recovered/Resolved]
  - Skin warm [Recovered/Resolved]
  - Seasonal allergy [Not Recovered/Not Resolved]
  - Sleep disorder due to general medical condition, insomnia type [Not Recovered/Not Resolved]
  - Throat irritation [Not Recovered/Not Resolved]
  - Alopecia [Not Recovered/Not Resolved]
  - Arthralgia [Not Recovered/Not Resolved]
  - Blood pressure abnormal [Not Recovered/Not Resolved]
  - Condition aggravated [Not Recovered/Not Resolved]
  - Cough [Not Recovered/Not Resolved]
  - Discharge [Not Recovered/Not Resolved]
  - Dizziness [Not Recovered/Not Resolved]
  - Dysphagia [Not Recovered/Not Resolved]
  - Ear infection [Not Recovered/Not Resolved]
  - Fatigue [Not Recovered/Not Resolved]
  - Haemorrhage [Not Recovered/Not Resolved]
  - Headache [Not Recovered/Not Resolved]
  - Infection [Recovered/Resolved]
  - Lymphadenopathy [Not Recovered/Not Resolved]
  - Memory impairment [Not Recovered/Not Resolved]
  - Nasopharyngitis [Not Recovered/Not Resolved]
  - Nausea [Not Recovered/Not Resolved]
  - Oral herpes [Recovered/Resolved]
  - Pruritus [Not Recovered/Not Resolved]
  - Rash macular [Not Recovered/Not Resolved]
  - Skin plaque [Not Recovered/Not Resolved]
  - Tonsillitis [Not Recovered/Not Resolved]
  - Vertigo [Not Recovered/Not Resolved]
  - Weight fluctuation [Not Recovered/Not Resolved]
  - Weight increased [Not Recovered/Not Resolved]
  - Weight decreased [Not Recovered/Not Resolved]
  - Pharyngitis [Not Recovered/Not Resolved]
  - Drug level decreased [Not Recovered/Not Resolved]
  - Maternal exposure during pregnancy [Not Recovered/Not Resolved]
  - Inappropriate schedule of product administration [Not Recovered/Not Resolved]
  - Intentional product use issue [Not Recovered/Not Resolved]
  - Off label use [Not Recovered/Not Resolved]
